FAERS Safety Report 10025942 (Version 1)
Quarter: 2014Q1

REPORT INFORMATION
  Report Type: Spontaneous
  Country: PL (occurrence: None)
  Receive Date: 20140314
  Receipt Date: 20140314
  Transmission Date: 20141002
  Serious: Yes (Other)
  Sender: FDA-Public Use
  Company Number: 2014AP001790

PATIENT
  Age: 36 Year
  Sex: Male

DRUGS (1)
  1. CYCLOSPORINE (CICLOSPORIN) [Suspect]
     Indication: PSORIASIS
     Route: 048
     Dates: start: 20131021, end: 20131023

REACTIONS (6)
  - Headache [None]
  - Dizziness [None]
  - Asthenia [None]
  - Nausea [None]
  - Insomnia [None]
  - Eye pain [None]
